FAERS Safety Report 19820929 (Version 1)
Quarter: 2021Q3

REPORT INFORMATION
  Report Type: Spontaneous
  Country: CN (occurrence: CN)
  Receive Date: 20210913
  Receipt Date: 20210913
  Transmission Date: 20211014
  Serious: Yes (Hospitalization)
  Sender: FDA-Public Use
  Company Number: CN-ROCHE-2904791

PATIENT
  Age: 52 Year
  Sex: Male

DRUGS (4)
  1. CETUXIMAB. [Suspect]
     Active Substance: CETUXIMAB
     Indication: COLON CANCER
     Route: 041
     Dates: start: 20210509
  2. CETUXIMAB. [Suspect]
     Active Substance: CETUXIMAB
     Route: 041
     Dates: start: 20210515
  3. CETUXIMAB. [Suspect]
     Active Substance: CETUXIMAB
     Route: 041
     Dates: start: 20210522, end: 20210522
  4. VEMURAFENIB. [Suspect]
     Active Substance: VEMURAFENIB
     Indication: COLON CANCER
     Route: 048
     Dates: start: 20210509, end: 20210522

REACTIONS (2)
  - Hepatic function abnormal [Recovering/Resolving]
  - Off label use [Unknown]

NARRATIVE: CASE EVENT DATE: 20210531
